FAERS Safety Report 9042094 (Version 1)
Quarter: 2013Q1

REPORT INFORMATION
  Report Type: Report from Study
  Country: US (occurrence: US)
  Receive Date: 20130129
  Receipt Date: 20130129
  Transmission Date: 20140127
  Serious: No
  Sender: FDA-Public Use
  Company Number: US-ABBOTT-12P-163-0909012-00

PATIENT
  Age: 50 Year
  Sex: Female

DRUGS (8)
  1. HUMIRA 40 MG/0.8 ML PEN [Suspect]
     Indication: CROHN^S DISEASE
     Dates: start: 201003
  2. PRAVASTATIN [Concomitant]
     Indication: PRODUCT USED FOR UNKNOWN INDICATION
     Dosage: 40 MG DAILY
     Route: 048
  3. ACTOS [Concomitant]
     Indication: PRODUCT USED FOR UNKNOWN INDICATION
     Dosage: 30 MG DAILY
     Route: 048
  4. LANTUS [Concomitant]
     Indication: PRODUCT USED FOR UNKNOWN INDICATION
     Dosage: 3 U DAILY
     Route: 058
  5. LISINOPRIL [Concomitant]
     Indication: PRODUCT USED FOR UNKNOWN INDICATION
     Dosage: 120 MG DAILY
     Route: 048
  6. LEVOXYL [Concomitant]
     Indication: PRODUCT USED FOR UNKNOWN INDICATION
     Dosage: 0.125 MG DAILY
     Route: 048
  7. 6-MP [Concomitant]
     Indication: PRODUCT USED FOR UNKNOWN INDICATION
  8. VICTOZA [Concomitant]
     Indication: BLOOD GLUCOSE ABNORMAL
     Dosage: 1.8 U DAILY
     Dates: start: 201111

REACTIONS (1)
  - Staphylococcal infection [Not Recovered/Not Resolved]
